FAERS Safety Report 16044672 (Version 1)
Quarter: 2019Q1

REPORT INFORMATION
  Report Type: Report from Study
  Country: None (occurrence: US)
  Receive Date: 20190306
  Receipt Date: 20190306
  Transmission Date: 20190418
  Serious: Yes (Other)
  Sender: FDA-Public Use
  Company Number: US-ABBVIE-19S-163-2685889-00

PATIENT
  Age: 26 Year
  Sex: Female

DRUGS (1)
  1. LUPRON [Suspect]
     Active Substance: LEUPROLIDE ACETATE
     Indication: PRODUCT USED FOR UNKNOWN INDICATION
     Route: 065

REACTIONS (23)
  - Pruritus [Unknown]
  - Menopausal symptoms [Unknown]
  - Lymphadenopathy [Unknown]
  - Unevaluable event [Unknown]
  - Lymphadenopathy [Unknown]
  - Atelectasis [Unknown]
  - Bone lesion [Unknown]
  - Pruritus [Unknown]
  - Mediastinal mass [Unknown]
  - Hilar lymphadenopathy [Unknown]
  - Abdominal lymphadenopathy [Unknown]
  - Lymphadenopathy [Unknown]
  - Hodgkin^s disease nodular sclerosis stage IV [Unknown]
  - Neck mass [Unknown]
  - Bone marrow disorder [Unknown]
  - Lymphadenopathy [Unknown]
  - CD30 expression [Unknown]
  - Pulmonary mass [Unknown]
  - Pulmonary mass [Unknown]
  - Pruritus [Unknown]
  - Cough [Unknown]
  - Vascular compression [Unknown]
  - Skin abrasion [Unknown]

NARRATIVE: CASE EVENT DATE: 2018
